FAERS Safety Report 7430805-4 (Version None)
Quarter: 2011Q2

REPORT INFORMATION
  Report Type: 
  Country: None (occurrence: None)
  Receive Date: 20110421
  Receipt Date: 20110418
  Transmission Date: 20111010
  Serious: Yes (Death)
  Sender: FDA-Public Use
  Company Number: CA-ABBOTT-10P-028-0680207-00

PATIENT
  Sex: Male
  Weight: 89.5 kg

DRUGS (4)
  1. MAVIK [Suspect]
     Indication: ESSENTIAL HYPERTENSION
     Route: 048
     Dates: start: 20100202
  2. FUROSEMIDE [Concomitant]
     Indication: PRODUCT USED FOR UNKNOWN INDICATION
     Route: 048
  3. METOPROLOL [Concomitant]
     Indication: PRODUCT USED FOR UNKNOWN INDICATION
     Route: 048
  4. MAVIK [Suspect]
     Route: 048
     Dates: start: 20100604

REACTIONS (3)
  - MALAISE [None]
  - CARDIAC FAILURE [None]
  - ANGIOEDEMA [None]
